FAERS Safety Report 22265129 (Version 1)
Quarter: 2023Q2

REPORT INFORMATION
  Report Type: Spontaneous
  Country: US (occurrence: None)
  Receive Date: 20230425
  Receipt Date: 20230425
  Transmission Date: 20230722
  Serious: No
  Sender: FDA-Public Use
  Company Number: None

PATIENT
  Age: 65 Year
  Sex: Female
  Weight: 58.06 kg

DRUGS (4)
  1. CIPROFLOXACIN HCL OPHTHALMIC [Suspect]
     Active Substance: CIPROFLOXACIN HYDROCHLORIDE
     Indication: Corneal abrasion
     Dosage: FREQUENCY : 4 TIMES A DAY;?
     Route: 047
     Dates: start: 20200410, end: 20200412
  2. LISINOPRIL [Suspect]
     Active Substance: LISINOPRIL
  3. ATORVASTATIN [Concomitant]
     Active Substance: ATORVASTATIN
  4. HYDROCHLOROTHIAZIDE [Concomitant]
     Active Substance: HYDROCHLOROTHIAZIDE

REACTIONS (4)
  - Instillation site irritation [None]
  - Vision blurred [None]
  - Product contamination physical [None]
  - Instillation site irritation [None]

NARRATIVE: CASE EVENT DATE: 20200411
